FAERS Safety Report 12301890 (Version 2)
Quarter: 2016Q2

REPORT INFORMATION
  Report Type: Spontaneous
  Country: US (occurrence: US)
  Receive Date: 20160425
  Receipt Date: 20160523
  Transmission Date: 20160815
  Serious: Yes (Death, Other)
  Sender: FDA-Public Use
  Company Number: US-GLAXOSMITHKLINE-US2016GSK057087

PATIENT
  Sex: Male
  Weight: 90.7 kg

DRUGS (1)
  1. ADVAIR HFA [Suspect]
     Active Substance: FLUTICASONE PROPIONATE\SALMETEROL XINAFOATE
     Indication: CHRONIC OBSTRUCTIVE PULMONARY DISEASE
     Dosage: 250 UG, UNK
     Route: 055
     Dates: start: 2013

REACTIONS (4)
  - Coeliac disease [Fatal]
  - Adult failure to thrive [Fatal]
  - Organ failure [Unknown]
  - Ill-defined disorder [Unknown]
